FAERS Safety Report 4441756-1 (Version None)
Quarter: 2004Q3

REPORT INFORMATION
  Report Type: 
  Country: None (occurrence: None)
  Receive Date: 20040903
  Receipt Date: 20040826
  Transmission Date: 20050211
  Serious: Yes (Hospitalization)
  Sender: FDA-Public Use
  Company Number: 2004059831

PATIENT
  Age: 80 Year
  Sex: Male
  Weight: 79.3795 kg

DRUGS (2)
  1. DESITIN DIAPER RASH (ZINC OXIDE) [Suspect]
     Indication: SKIN LESION
     Dosage: UNKNOWN AMOUNT ONCE, TOPICAL
     Route: 061
     Dates: start: 20040820, end: 20040820
  2. INSULIN [Concomitant]

REACTIONS (3)
  - APPLICATION SITE ERYTHEMA [None]
  - RASH GENERALISED [None]
  - RASH PAPULAR [None]
